FAERS Safety Report 7296032-9 (Version None)
Quarter: 2011Q1

REPORT INFORMATION
  Report Type: 
  Country: None (occurrence: None)
  Receive Date: 20110211
  Receipt Date: 20110211
  Transmission Date: 20110831
  Serious: Yes (Other)
  Sender: FDA-Public Use
  Company Number: None

PATIENT
  Age: 70 Year
  Sex: Female
  Weight: 79.3795 kg

DRUGS (1)
  1. ACTONEL [Suspect]
     Indication: OSTEOPOROSIS
     Dosage: ONCE - 150 MG MONTH
     Dates: start: 20110101, end: 20110129

REACTIONS (3)
  - MYALGIA [None]
  - CHEST PAIN [None]
  - ARTHRALGIA [None]
